FAERS Safety Report 15598047 (Version 1)
Quarter: 2018Q4

REPORT INFORMATION
  Report Type: Report from Study
  Country: JP (occurrence: JP)
  Receive Date: 20181108
  Receipt Date: 20181108
  Transmission Date: 20190205
  Serious: Yes (Death)
  Sender: FDA-Public Use
  Company Number: JP-KYOWAKIRIN-2018AKK005008

PATIENT

DRUGS (13)
  1. DAIPHEN [Concomitant]
     Active Substance: SULFAMETHOXAZOLE\TRIMETHOPRIM
     Indication: INFECTION PROPHYLAXIS
     Dosage: 0.5 DF, QD
     Route: 048
     Dates: start: 20160502
  2. DERMOVATE [Concomitant]
     Active Substance: CLOBETASOL
     Indication: RASH
     Dosage: UNK
     Route: 061
     Dates: start: 20160426, end: 20160607
  3. LANTUS [Concomitant]
     Active Substance: INSULIN GLARGINE
     Indication: DIABETES MELLITUS
     Dosage: UNK UNK, QD
     Route: 058
     Dates: start: 20160510, end: 20160517
  4. NEXIUM [Concomitant]
     Active Substance: ESOMEPRAZOLE MAGNESIUM
     Indication: PROPHYLAXIS AGAINST GASTROINTESTINAL ULCER
     Dosage: 20 MG, QD
     Route: 048
     Dates: start: 20160426
  5. PREDNISOLONE. [Concomitant]
     Active Substance: PREDNISOLONE
     Indication: STEVENS-JOHNSON SYNDROME
     Dosage: 20 MG, TID
     Route: 048
     Dates: start: 20160430
  6. SOL-MELCORT [Concomitant]
     Active Substance: METHYLPREDNISOLONE SODIUM SUCCINATE
     Indication: STEVENS-JOHNSON SYNDROME
     Dosage: 1000 MG, QD
     Route: 042
     Dates: start: 20160427, end: 20160429
  7. FLUCONAZOLE. [Concomitant]
     Active Substance: FLUCONAZOLE
     Indication: INFECTION PROPHYLAXIS
     Dosage: 100 MG, QD
     Route: 048
     Dates: start: 20160511
  8. NEORAL [Concomitant]
     Active Substance: CYCLOSPORINE
     Indication: STEVENS-JOHNSON SYNDROME
     Dosage: 50 MG, BID
     Route: 048
     Dates: start: 20160516, end: 20160716
  9. MOGAMULIZUMAB [Suspect]
     Active Substance: MOGAMULIZUMAB
     Indication: HEPATOCELLULAR CARCINOMA
     Dosage: UNK UNK, 1X/WEEK
     Route: 041
     Dates: start: 20160405, end: 20160419
  10. NIVOLUMAB [Suspect]
     Active Substance: NIVOLUMAB
     Indication: HEPATOCELLULAR CARCINOMA
     Dosage: UNK UNK, 1X/2 WEEKS
     Route: 065
     Dates: start: 20160405, end: 20160419
  11. NOVOLIN R [Concomitant]
     Active Substance: INSULIN HUMAN
     Indication: DIABETES MELLITUS
     Dosage: UNK UNK, QID
     Route: 058
     Dates: start: 20160426
  12. RINDERON V [Concomitant]
     Active Substance: BETAMETHASONE VALERATE
     Indication: RASH
     Dosage: UNK
     Route: 061
     Dates: start: 20160426, end: 20160609
  13. FEXOFENADINE [Concomitant]
     Active Substance: FEXOFENADINE\FEXOFENADINE HYDROCHLORIDE
     Indication: PRURITUS
     Dosage: 60 MG, BID
     Route: 048
     Dates: start: 20160426

REACTIONS (1)
  - General physical health deterioration [Fatal]
